FAERS Safety Report 25193016 (Version 1)
Quarter: 2025Q2

REPORT INFORMATION
  Report Type: Spontaneous
  Country: FR (occurrence: FR)
  Receive Date: 20250414
  Receipt Date: 20250414
  Transmission Date: 20250716
  Serious: Yes (Hospitalization, Other)
  Sender: GLAXOSMITHKLINE
  Company Number: None

PATIENT

DRUGS (1)
  1. VALACYCLOVIR HYDROCHLORIDE [Suspect]
     Active Substance: VALACYCLOVIR HYDROCHLORIDE
     Indication: Herpes zoster
     Dosage: 1 G, TID
     Route: 048
     Dates: start: 20250324, end: 20250401

REACTIONS (1)
  - Renal tubular necrosis [Recovering/Resolving]

NARRATIVE: CASE EVENT DATE: 20250331
